FAERS Safety Report 11390683 (Version 1)
Quarter: 2015Q3

REPORT INFORMATION
  Report Type: Spontaneous
  Country: DE (occurrence: None)
  Receive Date: 20150813
  Receipt Date: 20150813
  Transmission Date: 20151125
  Serious: Yes (Other)
  Sender: FDA-Public Use
  Company Number: 2015RR-101196

PATIENT
  Age: 1 Day
  Sex: Male
  Weight: 4 kg

DRUGS (2)
  1. CITALOPRAM (CITALOPRAM) UNKNOWN [Suspect]
     Active Substance: CITALOPRAM HYDROBROMIDE
     Indication: DEPRESSION
     Dosage: FROM 0-39 GESTATIONAL WEEK
     Route: 064
     Dates: start: 20140821, end: 20150521
  2. FOLIO (FOLIC ACID) [Concomitant]

REACTIONS (3)
  - Apnoea neonatal [None]
  - Maternal drugs affecting foetus [None]
  - Respiratory disorder neonatal [None]

NARRATIVE: CASE EVENT DATE: 20150521
